FAERS Safety Report 7047950-8 (Version None)
Quarter: 2010Q4

REPORT INFORMATION
  Report Type: 
  Country: None (occurrence: None)
  Receive Date: 20101015
  Receipt Date: 20101007
  Transmission Date: 20110411
  Serious: Yes (Death, Congenital Anomaly)
  Sender: FDA-Public Use
  Company Number: A0726403A

PATIENT
  Sex: Male
  Weight: 2.8 kg

DRUGS (3)
  1. PAXIL CR [Suspect]
     Indication: DEPRESSION
     Dosage: 25MG PER DAY
     Dates: start: 20050718, end: 20051101
  2. PRENATAL VITAMINS [Concomitant]
  3. INSULIN [Concomitant]

REACTIONS (8)
  - ATRIAL SEPTAL DEFECT [None]
  - CONGENITAL AORTIC ATRESIA [None]
  - COR TRIATRIATUM [None]
  - DRUG EXPOSURE DURING PREGNANCY [None]
  - HYPOPLASTIC LEFT HEART SYNDROME [None]
  - MITRAL VALVE ATRESIA [None]
  - PATENT DUCTUS ARTERIOSUS [None]
  - RIGHT VENTRICULAR FAILURE [None]
